FAERS Safety Report 8799086 (Version 3)
Quarter: 2013Q1

REPORT INFORMATION
  Report Type: Report from Study
  Country: US (occurrence: US)
  Receive Date: 20120920
  Receipt Date: 20130219
  Transmission Date: 20140127
  Serious: Yes (Hospitalization)
  Sender: FDA-Public Use
  Company Number: US-ACTELION-A-NJ2010-40212

PATIENT
  Age: 53 Year
  Sex: Female

DRUGS (6)
  1. TRACLEER [Suspect]
     Indication: PULMONARY ARTERIAL HYPERTENSION
     Dosage: 125 MG, BID
     Route: 048
     Dates: start: 200909
  2. TRACLEER [Suspect]
     Dosage: 62.5 MG, BID
     Route: 048
     Dates: start: 200907, end: 200909
  3. TYVASO [Concomitant]
  4. WARFARIN [Concomitant]
  5. ASPIRIN [Concomitant]
  6. PREDNISONE [Concomitant]

REACTIONS (9)
  - Rib fracture [Unknown]
  - Tibia fracture [Unknown]
  - Nasopharyngitis [Unknown]
  - Syncope [Unknown]
  - Presyncope [Unknown]
  - Dizziness [Unknown]
  - Flushing [Unknown]
  - Headache [Unknown]
  - Dyspnoea [Unknown]
